FAERS Safety Report 13760014 (Version 1)
Quarter: 2017Q3

REPORT INFORMATION
  Report Type: Spontaneous
  Country: IT (occurrence: IT)
  Receive Date: 20170717
  Receipt Date: 20170717
  Transmission Date: 20171127
  Serious: Yes (Hospitalization, Other)
  Sender: FDA-Public Use
  Company Number: IT-NOVOPROD-553282

PATIENT
  Age: 26 Year

DRUGS (2)
  1. NOVOSEVEN [Suspect]
     Active Substance: COAGULATION FACTOR VIIA RECOMBINANT HUMAN
     Indication: FACTOR VIII DEFICIENCY
     Dosage: BOLUS 90 ?G/KG
     Route: 042
  2. NOVOSEVEN [Suspect]
     Active Substance: COAGULATION FACTOR VIIA RECOMBINANT HUMAN
     Indication: PERITONEAL HAEMORRHAGE
     Dosage: 20 ?G/KG PER HOUR
     Route: 042

REACTIONS (2)
  - Haemorrhage [Unknown]
  - Off label use [Unknown]
